FAERS Safety Report 19366928 (Version 2)
Quarter: 2021Q3

REPORT INFORMATION
  Report Type: Report from Study
  Country: FR (occurrence: FR)
  Receive Date: 20210602
  Receipt Date: 20210701
  Transmission Date: 20211014
  Serious: Yes (Hospitalization, Other)
  Sender: FDA-Public Use
  Company Number: FR-AMGEN-FRACT2021082108

PATIENT
  Age: 70 Year
  Sex: Female
  Weight: 81.5 kg

DRUGS (18)
  1. BLINATUMOMAB [Suspect]
     Active Substance: BLINATUMOMAB
     Indication: RICHTER^S SYNDROME
     Dosage: 9 MICROGRAM, QD
     Route: 042
     Dates: start: 20210430, end: 20210506
  2. BLINATUMOMAB [Suspect]
     Active Substance: BLINATUMOMAB
     Dosage: 28 MICROGRAM, QD
     Route: 042
     Dates: start: 20210507, end: 20210513
  3. DOXORUBICIN [Suspect]
     Active Substance: DOXORUBICIN
     Dosage: 97 MILLIGRAM, QD/C2D1
     Route: 042
     Dates: start: 20210326, end: 20210326
  4. INNOHEP [Concomitant]
     Active Substance: TINZAPARIN SODIUM
     Indication: THROMBOSIS PROPHYLAXIS
     Dosage: 0.8 MILLILITER, QD
     Route: 058
     Dates: start: 20210305
  5. RITUXIMAB. [Suspect]
     Active Substance: RITUXIMAB
     Indication: RICHTER^S SYNDROME
     Dosage: UNK
     Route: 042
     Dates: start: 20200615, end: 20210118
  6. PREDNISONE. [Suspect]
     Active Substance: PREDNISONE
     Dosage: 110 MILLIGRAM, QD/D1 TO D5
     Route: 048
     Dates: start: 20210326, end: 20210330
  7. RITUXIMAB. [Suspect]
     Active Substance: RITUXIMAB
     Dosage: 730 MILLIGRAM, QD/C1D1
     Route: 042
     Dates: start: 20210305, end: 20210305
  8. VINCRISTINE [Suspect]
     Active Substance: VINCRISTINE
     Dosage: 2 MILLIGRAM, QD/C2D1
     Route: 042
     Dates: start: 20210326, end: 20210326
  9. VALACICLOVIR [Concomitant]
     Active Substance: VALACYCLOVIR HYDROCHLORIDE
     Indication: INFECTION PROPHYLAXIS
     Dosage: 500 MILLIGRAM, BID
     Route: 048
     Dates: start: 20210305
  10. BLINATUMOMAB [Suspect]
     Active Substance: BLINATUMOMAB
     Dosage: 112 MICROGRAM, QD
     Route: 042
     Dates: start: 20210514, end: 20210602
  11. CYCLOPHOSPHAMIDE. [Suspect]
     Active Substance: CYCLOPHOSPHAMIDE
     Indication: RICHTER^S SYNDROME
     Dosage: 1460 MILLIGRAM, QD/C1D1
     Route: 042
     Dates: start: 20210305, end: 20210305
  12. CYCLOPHOSPHAMIDE. [Suspect]
     Active Substance: CYCLOPHOSPHAMIDE
     Dosage: 1460 MILLIGRAM, QD/C2D1
     Route: 042
     Dates: start: 20210326, end: 20210326
  13. LEDERFOLINE [Concomitant]
     Active Substance: LEUCOVORIN CALCIUM
     Indication: HYPERTENSION
     Dosage: 25 MILLIGRAM, QWK
     Route: 048
  14. BACTRIM [Concomitant]
     Active Substance: SULFAMETHOXAZOLE\TRIMETHOPRIM
     Indication: INFECTION PROPHYLAXIS
     Dosage: 1 DOSAGE FORM (TABLETS), 3 TIMES/WK
     Route: 048
     Dates: start: 20210305
  15. RITUXIMAB. [Suspect]
     Active Substance: RITUXIMAB
     Dosage: 730 MILLIGRAM, QD/C2D1
     Route: 042
     Dates: start: 20210326, end: 20210326
  16. DOXORUBICIN [Suspect]
     Active Substance: DOXORUBICIN
     Indication: RICHTER^S SYNDROME
     Dosage: 97 MILLIGRAM, QD/C1D1
     Route: 042
     Dates: start: 20210305, end: 20210305
  17. PREDNISONE. [Suspect]
     Active Substance: PREDNISONE
     Indication: RICHTER^S SYNDROME
     Dosage: 110 MILLIGRAM, QD/D1 TO D5
     Route: 048
     Dates: start: 20210305, end: 20210309
  18. VINCRISTINE [Suspect]
     Active Substance: VINCRISTINE
     Indication: RICHTER^S SYNDROME
     Dosage: 2 MILLIGRAM, QD/C1D1
     Route: 042
     Dates: start: 20210305, end: 20210305

REACTIONS (1)
  - Immune effector cell-associated neurotoxicity syndrome [Recovered/Resolved]

NARRATIVE: CASE EVENT DATE: 20210514
